FAERS Safety Report 17983744 (Version 1)
Quarter: 2020Q3

REPORT INFORMATION
  Report Type: Spontaneous
  Country: US (occurrence: US)
  Receive Date: 20200703
  Receipt Date: 20200703
  Transmission Date: 20201103
  Serious: No
  Sender: FDA-Public Use
  Company Number: None

PATIENT
  Age: 33 Year
  Sex: Female
  Weight: 60.33 kg

DRUGS (2)
  1. MULTIVITAMIN [Concomitant]
     Active Substance: VITAMINS
  2. PARAGARD T 380A [Suspect]
     Active Substance: COPPER
     Dates: start: 20140205, end: 20190926

REACTIONS (26)
  - Malaise [None]
  - Fatigue [None]
  - Paraesthesia [None]
  - Shock [None]
  - Abdominal pain [None]
  - Muscle tightness [None]
  - Impaired work ability [None]
  - Embedded device [None]
  - Cervical plexus lesion [None]
  - Hypophagia [None]
  - Pelvic floor dysfunction [None]
  - Device information output issue [None]
  - Insomnia [None]
  - Gastritis [None]
  - Hyperadrenocorticism [None]
  - Ocular discomfort [None]
  - Fibrin D dimer increased [None]
  - Noninfective gingivitis [None]
  - Uterine perforation [None]
  - Weight decreased [None]
  - Systemic inflammatory response syndrome [None]
  - Dysmenorrhoea [None]
  - Tachycardia [None]
  - Device dislocation [None]
  - Abdominal discomfort [None]
  - Asthenopia [None]

NARRATIVE: CASE EVENT DATE: 20190804
